FAERS Safety Report 10159316 (Version 1)
Quarter: 2014Q2

REPORT INFORMATION
  Report Type: Spontaneous
  Country: US (occurrence: None)
  Receive Date: 20140507
  Receipt Date: 20140507
  Transmission Date: 20141212
  Serious: Yes (Hospitalization)
  Sender: FDA-Public Use
  Company Number: None

PATIENT
  Age: 63 Year
  Sex: Male
  Weight: 70 kg

DRUGS (1)
  1. OLYSIO [Suspect]
     Indication: HEPATITIS C VIRUS TEST
     Route: 048
     Dates: start: 20131226, end: 20140313

REACTIONS (1)
  - Jaundice [None]
